FAERS Safety Report 4359270-0 (Version None)
Quarter: 2004Q2

REPORT INFORMATION
  Report Type: 
  Country: None (occurrence: None)
  Receive Date: 20040518
  Receipt Date: 20040512
  Transmission Date: 20050107
  Serious: Yes (Hospitalization)
  Sender: FDA-Public Use
  Company Number: 200413703US

PATIENT
  Sex: Male

DRUGS (9)
  1. DOCETAXEL [Suspect]
     Indication: OESOPHAGEAL CARCINOMA
     Route: 042
     Dates: start: 20040303
  2. IRINOTECAN [Suspect]
     Indication: OESOPHAGEAL CARCINOMA
     Route: 042
     Dates: start: 20040303
  3. SYNTHROID [Concomitant]
  4. PROTONIX [Concomitant]
  5. ZOFRAN [Concomitant]
  6. PROCHLORPERAZINE [Concomitant]
  7. MEGACE [Concomitant]
  8. MORPHINE [Concomitant]
  9. DECADRON [Concomitant]

REACTIONS (12)
  - ASTHENIA [None]
  - BLOOD POTASSIUM DECREASED [None]
  - CAROTID BRUIT [None]
  - CEREBRAL INFARCTION [None]
  - CEREBROVASCULAR ACCIDENT [None]
  - FEELING OF BODY TEMPERATURE CHANGE [None]
  - HAEMOGLOBIN DECREASED [None]
  - NEUTROPHIL COUNT ABNORMAL [None]
  - PARAESTHESIA [None]
  - REFLEXES ABNORMAL [None]
  - VIBRATION TEST ABNORMAL [None]
  - WHITE BLOOD CELL COUNT DECREASED [None]
